FAERS Safety Report 16037875 (Version 1)
Quarter: 2019Q1

REPORT INFORMATION
  Report Type: Spontaneous
  Country: FR (occurrence: FR)
  Receive Date: 20190305
  Receipt Date: 20190305
  Transmission Date: 20190418
  Serious: Yes (Other)
  Sender: FDA-Public Use
  Company Number: FR-MYLANLABS-2019M1019234

PATIENT
  Age: 93 Year
  Sex: Female
  Weight: 48.3 kg

DRUGS (9)
  1. AMIODARONE ARROW [Concomitant]
     Active Substance: AMIODARONE
     Dosage: 200 MILLIGRAM, QD
     Route: 048
  2. ELIQUIS [Concomitant]
     Active Substance: APIXABAN
     Dosage: 2.5 MILLIGRAM, QD
     Route: 048
     Dates: start: 201807
  3. SERESTA [Concomitant]
     Active Substance: OXAZEPAM
     Dosage: 30 MILLIGRAM, QD
     Route: 048
  4. ARANESP [Concomitant]
     Active Substance: DARBEPOETIN ALFA
     Indication: NEPHROGENIC ANAEMIA
     Dosage: 20 MICROGRAM, QW
     Route: 058
     Dates: start: 20180731
  5. VENLAFAXINE [Suspect]
     Active Substance: VENLAFAXINE HYDROCHLORIDE
     Indication: DEPRESSION
     Dosage: 1 UNK, QD
     Route: 048
     Dates: start: 20180718, end: 20180820
  6. LASILIX                            /00032601/ [Suspect]
     Active Substance: FUROSEMIDE
     Indication: OEDEMA
     Dosage: 40 MILLIGRAM, QD
     Route: 048
     Dates: start: 20180808, end: 20180821
  7. MIANSERINE ARROW [Suspect]
     Active Substance: MIANSERIN HYDROCHLORIDE
     Indication: DEPRESSION
     Dosage: 1 DOSAGE FORM, QD
     Route: 048
     Dates: start: 20180807, end: 20180820
  8. UVEDOSE [Suspect]
     Active Substance: CHOLECALCIFEROL
     Indication: VITAMIN D DEFICIENCY
     Dosage: 1 DOSAGE FORM, BIMONTHLY
     Route: 048
     Dates: start: 20180731, end: 20180814
  9. LANSOPRAZOLE MYLAN [Suspect]
     Active Substance: LANSOPRAZOLE
     Indication: GASTROOESOPHAGEAL REFLUX DISEASE
     Dosage: 15 MILLIGRAM, QD
     Route: 048
     Dates: start: 20180730, end: 20180822

REACTIONS (2)
  - Hepatocellular injury [Recovered/Resolved]
  - Cholestasis [Recovering/Resolving]

NARRATIVE: CASE EVENT DATE: 20180817
